FAERS Safety Report 21043100 (Version 1)
Quarter: 2022Q3

REPORT INFORMATION
  Report Type: Report from Study
  Country: CA (occurrence: CA)
  Receive Date: 20220705
  Receipt Date: 20220705
  Transmission Date: 20221027
  Serious: Yes (Other)
  Sender: FDA-Public Use
  Company Number: CA-GLAXOSMITHKLINE-CA2022098974

PATIENT

DRUGS (1)
  1. MEPOLIZUMAB [Suspect]
     Active Substance: MEPOLIZUMAB
     Indication: Asthma
     Dosage: 100 MG, Z,  EVERY 4 WEEKS
     Route: 058
     Dates: start: 20191001

REACTIONS (3)
  - Cataract [Unknown]
  - Fuchs^ syndrome [Unknown]
  - Corneal transplant [Unknown]
